FAERS Safety Report 13850258 (Version 1)
Quarter: 2017Q3

REPORT INFORMATION
  Report Type: Report from Study
  Country: GB (occurrence: GB)
  Receive Date: 20170809
  Receipt Date: 20170809
  Transmission Date: 20171127
  Serious: Yes (Other)
  Sender: FDA-Public Use
  Company Number: GB-BAYER-2017-148731

PATIENT

DRUGS (1)
  1. DACARBAZINE. [Suspect]
     Active Substance: DACARBAZINE

REACTIONS (2)
  - Autoimmune dermatitis [None]
  - Neuropathy peripheral [Recovered/Resolved]
